FAERS Safety Report 9933335 (Version 2)
Quarter: 2014Q1

REPORT INFORMATION
  Report Type: Report from Study
  Country: US (occurrence: US)
  Receive Date: 20140228
  Receipt Date: 20140228
  Transmission Date: 20141002
  Serious: Yes (Other)
  Sender: FDA-Public Use
  Company Number: US-MYLANLABS-2013S1005562

PATIENT
  Age: 14 Year
  Sex: Male
  Weight: 81.65 kg

DRUGS (5)
  1. AMNESTEEM CAPSULES [Suspect]
     Indication: ACNE
     Route: 048
     Dates: start: 20131210, end: 20130308
  2. AMNESTEEM CAPSULES [Suspect]
     Indication: ACNE
     Route: 048
     Dates: start: 20120209, end: 20130308
  3. ALBUTEROL [Concomitant]
  4. ALLEGRA [Concomitant]
  5. FLONASE [Concomitant]

REACTIONS (1)
  - Hip fracture [Not Recovered/Not Resolved]
